FAERS Safety Report 4757100-6 (Version None)
Quarter: 2005Q3

REPORT INFORMATION
  Report Type: 
  Country: None (occurrence: None)
  Receive Date: 20050829
  Receipt Date: 20050829
  Transmission Date: 20060218
  Serious: Yes (Hospitalization, Disabling, Other)
  Sender: FDA-Public Use
  Company Number: None

PATIENT
  Age: 45 Year
  Sex: Female
  Weight: 102.9665 kg

DRUGS (1)
  1. KLONOPIN [Suspect]
     Indication: ANXIETY
     Dosage: .25 MGS    T.I.D.   PO
     Route: 048
     Dates: start: 20050324, end: 20050820

REACTIONS (12)
  - ASTHENIA [None]
  - BEDRIDDEN [None]
  - COGNITIVE DISORDER [None]
  - DRUG DEPENDENCE [None]
  - DRUG WITHDRAWAL SYNDROME [None]
  - GASTROINTESTINAL PAIN [None]
  - LOSS OF EMPLOYMENT [None]
  - NERVOUS SYSTEM DISORDER [None]
  - PAIN [None]
  - PANIC ATTACK [None]
  - PARADOXICAL DRUG REACTION [None]
  - TACHYCARDIA [None]
